FAERS Safety Report 8802349 (Version 2)
Quarter: 2015Q3

REPORT INFORMATION
  Report Type: Report from Study
  Country: US (occurrence: US)
  Receive Date: 20120921
  Receipt Date: 20150701
  Transmission Date: 20151125
  Serious: Yes (Death)
  Sender: FDA-Public Use
  Company Number: US-ROCHE-1126011

PATIENT
  Sex: Female

DRUGS (23)
  1. XELODA [Suspect]
     Active Substance: CAPECITABINE
     Indication: PRODUCT USED FOR UNKNOWN INDICATION
     Route: 065
  2. VALSARTAN. [Concomitant]
     Active Substance: VALSARTAN
  3. OMNICEF (UNITED STATES) [Concomitant]
     Route: 048
  4. RHINOCORT [Concomitant]
     Active Substance: BUDESONIDE
  5. HERCEPTIN [Suspect]
     Active Substance: TRASTUZUMAB
     Indication: PRODUCT USED FOR UNKNOWN INDICATION
     Route: 042
  6. ZIAC (UNITED STATES) [Concomitant]
  7. GEMZAR [Concomitant]
     Active Substance: GEMCITABINE HYDROCHLORIDE
  8. NORVASC [Concomitant]
     Active Substance: AMLODIPINE BESYLATE
     Route: 065
  9. TYKERB [Concomitant]
     Active Substance: LAPATINIB DITOSYLATE
  10. NAVELBINE [Concomitant]
     Active Substance: VINORELBINE TARTRATE
     Route: 042
  11. BENADRYL [Concomitant]
     Active Substance: DIPHENHYDRAMINE HYDROCHLORIDE
     Route: 048
  12. NEUPOGEN [Concomitant]
     Active Substance: FILGRASTIM
     Route: 065
  13. CLONIDINE. [Concomitant]
     Active Substance: CLONIDINE
     Route: 065
  14. TAXOL [Concomitant]
     Active Substance: PACLITAXEL
  15. AUGMENTIN [Concomitant]
     Active Substance: AMOXICILLIN\CLAVULANATE POTASSIUM
     Route: 048
  16. TAXOTERE [Concomitant]
     Active Substance: DOCETAXEL
  17. AVASTIN [Suspect]
     Active Substance: BEVACIZUMAB
     Indication: BREAST CANCER FEMALE
     Route: 042
     Dates: start: 20060901
  18. DEXAMETHASONE. [Concomitant]
     Active Substance: DEXAMETHASONE
     Route: 042
  19. ALOXI [Concomitant]
     Active Substance: PALONOSETRON HYDROCHLORIDE
     Route: 042
  20. SINGULAIR [Concomitant]
     Active Substance: MONTELUKAST SODIUM
  21. HYDANTOIN [Concomitant]
  22. ARANESP [Concomitant]
     Active Substance: DARBEPOETIN ALFA
     Route: 042
  23. AMBIEN [Concomitant]
     Active Substance: ZOLPIDEM TARTRATE
     Route: 065

REACTIONS (32)
  - Sinusitis [Unknown]
  - Sputum discoloured [Unknown]
  - Ear pain [Unknown]
  - Nausea [Unknown]
  - Headache [Unknown]
  - Sneezing [Unknown]
  - Hypertension [Recovered/Resolved]
  - Disease recurrence [Unknown]
  - Lacrimation increased [Unknown]
  - Eye discharge [Unknown]
  - Neutropenia [Unknown]
  - Nasal septum deviation [Unknown]
  - Infection [Unknown]
  - Abdominal discomfort [Unknown]
  - Mass [Unknown]
  - Death [Fatal]
  - Body temperature increased [Unknown]
  - Fatigue [Recovering/Resolving]
  - Haemorrhage [Unknown]
  - Cough [Recovering/Resolving]
  - Throat irritation [Unknown]
  - Nasal discharge discolouration [Unknown]
  - Pruritus [Unknown]
  - Pleural effusion [Unknown]
  - Palmar-plantar erythrodysaesthesia syndrome [Unknown]
  - Drug ineffective [Unknown]
  - Rash [Unknown]
  - Chest discomfort [Unknown]
  - Erythema [Unknown]
  - Chest pain [Unknown]
  - Hepatic function abnormal [Unknown]
  - Skin disorder [Unknown]
